FAERS Safety Report 9432299 (Version 2)
Quarter: 2013Q3

REPORT INFORMATION
  Report Type: Spontaneous
  Country: US (occurrence: None)
  Receive Date: 20130729
  Receipt Date: 20130805
  Transmission Date: 20140515
  Serious: Yes (Hospitalization)
  Sender: FDA-Public Use
  Company Number: 2013-1220

PATIENT
  Age: 67 Year
  Sex: Female
  Weight: 84.9 kg

DRUGS (3)
  1. CARFILZOMIB [Suspect]
     Indication: PLASMA CELL MYELOMA
     Dosage: 52.9 MG, DAYS 1, 2, 8, 9, 15, 16, INTRAVENOUS
     Dates: start: 20111115
  2. POMALIDOMIDE (POMALIDOMIDE) (POMALIDOMIDE) [Concomitant]
  3. DEXAMETHASONE (DEXAMETHASONE) (DEXAMETHASONE) [Concomitant]

REACTIONS (2)
  - Fluid overload [None]
  - Cardiomegaly [None]
